FAERS Safety Report 26105504 (Version 1)
Quarter: 2025Q4

REPORT INFORMATION
  Report Type: Report from Study
  Country: US (occurrence: US)
  Receive Date: 20251201
  Receipt Date: 20251201
  Transmission Date: 20260117
  Serious: Yes (Hospitalization)
  Sender: ABBVIE
  Company Number: US-ABBVIE-6567390

PATIENT
  Sex: Female

DRUGS (1)
  1. HUMIRA [Suspect]
     Active Substance: ADALIMUMAB
     Indication: Crohn^s disease
     Dosage: CITRATE FREE?DOSE FORM: SOLUTION FOR INJECTION IN PRE-FILLED PEN
     Route: 058

REACTIONS (3)
  - Anaemia [Unknown]
  - Full blood count decreased [Unknown]
  - Hand deformity [Unknown]
